FAERS Safety Report 23541320 (Version 1)
Quarter: 2024Q1

REPORT INFORMATION
  Report Type: Report from Study
  Country: IN (occurrence: None)
  Receive Date: 20240219
  Receipt Date: 20240219
  Transmission Date: 20240409
  Serious: Yes (Death, Hospitalization)
  Sender: FDA-Public Use
  Company Number: 2024A040308

PATIENT
  Age: 27547 Day
  Sex: Male

DRUGS (4)
  1. TAGRISSO [Suspect]
     Active Substance: OSIMERTINIB
     Indication: Non-small cell lung cancer metastatic
     Route: 048
     Dates: end: 20240129
  2. ESLO [Concomitant]
  3. ROSUVASTATIN CALCIUM [Concomitant]
     Active Substance: ROSUVASTATIN CALCIUM
  4. IVABID [Concomitant]

REACTIONS (4)
  - Blood creatinine increased [Fatal]
  - Vomiting [Fatal]
  - Diarrhoea [Fatal]
  - Chest pain [Fatal]

NARRATIVE: CASE EVENT DATE: 20240130
